FAERS Safety Report 4849585-1 (Version None)
Quarter: 2005Q4

REPORT INFORMATION
  Report Type: 
  Country: None (occurrence: None)
  Receive Date: 20051207
  Receipt Date: 20050802
  Transmission Date: 20060501
  Serious: Yes (Life-Threatening, Hospitalization)
  Sender: FDA-Public Use
  Company Number: 2005059749

PATIENT
  Age: 45 Year
  Sex: Male
  Weight: 55 kg

DRUGS (9)
  1. IRINOTECAN HCL [Suspect]
     Indication: COLORECTAL CANCER
     Dosage: 40 MG (INTERMITTENT), INTRAVENOUS
     Route: 042
     Dates: start: 20050321, end: 20050325
  2. OXYCONTIN [Suspect]
     Indication: CANCER PAIN
     Dosage: 120 MG (20 MG, 6 IN 1 D), ORAL
     Route: 048
     Dates: start: 20050115, end: 20050406
  3. TEGAFUR (TEGAFUR) [Concomitant]
  4. ZOLPIDEM TARTRATE [Concomitant]
  5. DEPAS (ETIZOLAM) [Concomitant]
  6. NITRAZEPAM [Concomitant]
  7. NOVAMIN (PROCHLORPERAZINE) [Concomitant]
  8. LASIX [Concomitant]
  9. ALDACTONE [Concomitant]

REACTIONS (13)
  - ALOPECIA [None]
  - BLOOD PRESSURE DECREASED [None]
  - DIZZINESS [None]
  - ENTEROCOLITIS HAEMORRHAGIC [None]
  - FALL [None]
  - GASTROENTERITIS STAPHYLOCOCCAL [None]
  - GASTROINTESTINAL HAEMORRHAGE [None]
  - GASTROINTESTINAL MUCOSAL NECROSIS [None]
  - LEUKOPENIA [None]
  - PYREXIA [None]
  - SHOCK HAEMORRHAGIC [None]
  - THROMBOSIS [None]
  - WHITE BLOOD CELL COUNT DECREASED [None]
